FAERS Safety Report 6532408-2 (Version None)
Quarter: 2010Q1

REPORT INFORMATION
  Report Type: 
  Country: None (occurrence: None)
  Receive Date: 20100108
  Receipt Date: 20100105
  Transmission Date: 20100710
  Serious: Yes (Other)
  Sender: FDA-Public Use
  Company Number: US-ELI_LILLY_AND_COMPANY-US201001000637

PATIENT
  Sex: Male
  Weight: 61 kg

DRUGS (11)
  1. GEMCITABINE HCL [Suspect]
     Indication: PANCREATIC CARCINOMA
     Route: 042
     Dates: start: 20090824
  2. OTHER PHARMA COMPANY INV DRUG [Suspect]
     Indication: PANCREATIC CARCINOMA
     Dosage: UNK, UNK
     Route: 042
     Dates: start: 20090824
  3. TARCEVA [Suspect]
     Indication: PANCREATIC CARCINOMA
     Dosage: 100 MG, DAILY (1/D)
     Route: 048
     Dates: start: 20090824
  4. OXYCODONE HCL [Concomitant]
     Dosage: UNK, AS NEEDED
     Route: 048
  5. LOMOTIL [Concomitant]
     Dosage: UNK, AS NEEDED
  6. MAGNESIUM OXIDE [Concomitant]
     Dosage: 400 MG, 2/D
     Route: 048
  7. CITALOPRAM HYDROBROMIDE [Concomitant]
     Dosage: 20 MG, DAILY (1/D)
     Route: 048
  8. HYDROCODONE BITARTRATE AND ACETAMINOPHEN [Concomitant]
     Dosage: UNK, AS NEEDED
     Route: 048
  9. POTASSIUM CHLORIDE [Concomitant]
     Dosage: 20 MEQ, DAILY (1/D)
  10. PANCRELIPASE [Concomitant]
     Dosage: UNK, DAILY (1/D)
  11. ONDANSETRON [Concomitant]
     Dosage: UNK, AS NEEDED
     Route: 048

REACTIONS (1)
  - WEIGHT DECREASED [None]
